FAERS Safety Report 6235320-1 (Version None)
Quarter: 2009Q2

REPORT INFORMATION
  Report Type: 
  Country: None (occurrence: None)
  Receive Date: 20090618
  Receipt Date: 20090611
  Transmission Date: 20091009
  Serious: Yes (Other)
  Sender: FDA-Public Use
  Company Number: US-JNJCH-2009016185

PATIENT
  Age: 80 Year
  Sex: Female
  Weight: 43.1 kg

DRUGS (11)
  1. ZYRTEC [Suspect]
     Indication: HYPERSENSITIVITY
     Dosage: TEXT:ONE TABLET ONCE
     Route: 048
     Dates: start: 20090610, end: 20090610
  2. LISINOPRIL [Concomitant]
     Indication: HYPERTENSION
     Dosage: TEXT:1 PER DAY
     Route: 048
  3. CARDIAZEM (AVENTIS) [Concomitant]
     Indication: CARDIAC DISORDER
     Dosage: TEXT:2 PER DAY
     Route: 048
  4. FLECAINIDE ACETATE [Concomitant]
     Indication: CARDIAC DISORDER
     Dosage: TEXT:1 PER DAY
     Route: 048
  5. DIGOXIN [Concomitant]
     Indication: CARDIAC DISORDER
     Dosage: TEXT:1 PER DAY
     Route: 048
  6. EVISTA [Concomitant]
     Indication: BONE DISORDER
     Dosage: TEXT:1 PER DAY
     Route: 048
  7. ASPIRIN [Concomitant]
     Indication: CARDIAC DISORDER
     Dosage: TEXT:1 PER DAY
     Route: 048
  8. PREDNISONE [Concomitant]
     Indication: ARTHRITIS
     Dosage: TEXT:1 PER DAY
     Route: 048
  9. VITAMIN D [Concomitant]
     Indication: DRUG USE FOR UNKNOWN INDICATION
     Dosage: TEXT:1 PER WEEK
     Route: 048
  10. FUROSEMIDE [Concomitant]
     Indication: FLUID IMBALANCE
     Dosage: TEXT:1 PER DAY
     Route: 048
  11. LEFLUNOMIDE [Concomitant]
     Indication: ARTHRITIS
     Dosage: TEXT:1 PER DAY
     Route: 048

REACTIONS (3)
  - BLOOD PRESSURE INCREASED [None]
  - CONDITION AGGRAVATED [None]
  - WRONG DRUG ADMINISTERED [None]
